FAERS Safety Report 9821539 (Version 2)
Quarter: 2014Q1

REPORT INFORMATION
  Report Type: Spontaneous
  Country: CH (occurrence: CH)
  Receive Date: 20140116
  Receipt Date: 20140212
  Transmission Date: 20141002
  Serious: Yes (Other)
  Sender: FDA-Public Use
  Company Number: CH-AMGEN-CHESP2014002403

PATIENT
  Age: 73 Year
  Sex: Female

DRUGS (3)
  1. PROLIA [Suspect]
     Indication: OSTEOPOROSIS POSTMENOPAUSAL
     Dosage: 60 MG/ML, ONCE
     Route: 058
     Dates: start: 20131001
  2. CALCIMAGON                         /00751501/ [Concomitant]
     Indication: OSTEOPOROSIS
     Dosage: 2500/900, QD
     Route: 048
     Dates: start: 20121029
  3. REMERON [Concomitant]
     Indication: DEPRESSION
     Dosage: 15 G, QD
     Route: 048
     Dates: start: 20130129

REACTIONS (3)
  - Paralysis [Recovered/Resolved]
  - Paraesthesia [Recovered/Resolved]
  - Muscle spasms [Unknown]
